FAERS Safety Report 7010097-0 (Version None)
Quarter: 2010Q3

REPORT INFORMATION
  Report Type: 
  Country: None (occurrence: None)
  Receive Date: 20100923
  Receipt Date: 20100921
  Transmission Date: 20110219
  Serious: Yes (Hospitalization)
  Sender: FDA-Public Use
  Company Number: FR-WYE-G06712710

PATIENT
  Age: 18 Month
  Sex: Male

DRUGS (1)
  1. IBUPROFEN (ADVIL) [Suspect]
     Indication: PYREXIA
     Dosage: 1 SINGLE INTAKE OF AN UNKNOWN DOSE
     Route: 048
     Dates: start: 20100101, end: 20100101

REACTIONS (1)
  - CELLULITIS [None]
